FAERS Safety Report 9696324 (Version 2)
Quarter: 2013Q4

REPORT INFORMATION
  Report Type: Spontaneous
  Country: US (occurrence: US)
  Receive Date: 20131119
  Receipt Date: 20131125
  Transmission Date: 20140711
  Serious: Yes (Hospitalization, Other)
  Sender: FDA-Public Use
  Company Number: US-PFIZER INC-2013322940

PATIENT
  Age: 59 Year
  Sex: Female
  Weight: 74.83 kg

DRUGS (6)
  1. GEODON [Suspect]
     Indication: BIPOLAR DISORDER
     Dosage: 80 MG, 2X/DAY
     Route: 048
     Dates: start: 2010
  2. GEODON [Suspect]
     Indication: SCHIZOPHRENIA
  3. TRIHEXYPHENIDYL [Concomitant]
     Indication: BIPOLAR DISORDER
     Dosage: 5 MG, 3X/DAY
     Route: 048
     Dates: start: 2013
  4. TRIHEXYPHENIDYL [Concomitant]
     Indication: SCHIZOPHRENIA
  5. OLANZAPINE [Concomitant]
     Indication: BIPOLAR DISORDER
     Dosage: 10MG IN MORNING AND 20MG AT NIGHT; 2X/DAY
     Route: 048
     Dates: start: 2013
  6. OLANZAPINE [Concomitant]
     Indication: SCHIZOPHRENIA

REACTIONS (2)
  - Hallucination, auditory [Unknown]
  - Mania [Recovered/Resolved]
